FAERS Safety Report 6150966-7 (Version None)
Quarter: 2009Q2

REPORT INFORMATION
  Report Type: 
  Country: None (occurrence: None)
  Receive Date: 20090410
  Receipt Date: 20090331
  Transmission Date: 20091009
  Serious: Yes (Other)
  Sender: FDA-Public Use
  Company Number: GB-RANBAXY-2009RR-23176

PATIENT
  Age: 19 Year
  Sex: Male

DRUGS (2)
  1. FLUOXETINE [Suspect]
     Dosage: 20 MG, QD
     Route: 048
     Dates: start: 20090206, end: 20090220
  2. PARAMAX [Concomitant]
     Indication: MIGRAINE
     Dosage: 2 DF, UNK
     Route: 048
     Dates: start: 20090119, end: 20090131

REACTIONS (2)
  - CONFUSIONAL STATE [None]
  - DYSKINESIA [None]
